FAERS Safety Report 5412269-5 (Version None)
Quarter: 2007Q3

REPORT INFORMATION
  Report Type: 
  Country: None (occurrence: None)
  Receive Date: 20070713
  Receipt Date: 20070523
  Transmission Date: 20080115
  Serious: No
  Sender: FDA-Public Use
  Company Number: 2007SP001932

PATIENT
  Age: 77 Year
  Sex: Male
  Weight: 68.0396 kg

DRUGS (5)
  1. LUNESTA [Suspect]
     Indication: INSOMNIA
     Dosage: 2 MG;PRN;ORAL
     Route: 048
     Dates: start: 20070501
  2. PROSCAR [Concomitant]
  3. ANTIHYPERTENSIVES [Concomitant]
  4. WATER PILLS [Concomitant]
  5. VALIUM [Concomitant]

REACTIONS (5)
  - DRY MOUTH [None]
  - DYSPNOEA [None]
  - HEADACHE [None]
  - MIDDLE INSOMNIA [None]
  - NASAL DRYNESS [None]
